FAERS Safety Report 9504875 (Version 1)
Quarter: 2013Q3

REPORT INFORMATION
  Report Type: Spontaneous
  Country: US (occurrence: US)
  Receive Date: 20130906
  Receipt Date: 20130906
  Transmission Date: 20140515
  Serious: No
  Sender: FDA-Public Use
  Company Number: US-009507513-1309USA000869

PATIENT
  Age: 20 Month
  Sex: Male

DRUGS (1)
  1. COPPERTONE WATER BABIES LOTION SPF-50 [Suspect]
     Indication: PRODUCT USED FOR UNKNOWN INDICATION
     Dosage: UNK, ONCE
     Route: 061

REACTIONS (2)
  - Rash erythematous [Not Recovered/Not Resolved]
  - Screaming [Not Recovered/Not Resolved]
